FAERS Safety Report 10668137 (Version 1)
Quarter: 2014Q4

REPORT INFORMATION
  Report Type: Spontaneous
  Country: GB (occurrence: None)
  Receive Date: 20141218
  Receipt Date: 20141218
  Transmission Date: 20150529
  Serious: No
  Sender: FDA-Public Use
  Company Number: GB-LHC-2014113

PATIENT
  Sex: Female

DRUGS (1)
  1. LIQUID MEDICAL OXYGEN (OXYGEN) (GAS FOR INHALTION) (VERUM ) [Suspect]
     Active Substance: OXYGEN
     Indication: ACCIDENTAL EXPOSURE TO PRODUCT

REACTIONS (4)
  - Device use error [None]
  - Thermal burn [None]
  - Medical device complication [None]
  - Blister [None]

NARRATIVE: CASE EVENT DATE: 20141205
